FAERS Safety Report 6198516-3 (Version None)
Quarter: 2009Q2

REPORT INFORMATION
  Report Type: 
  Country: None (occurrence: None)
  Receive Date: 20090521
  Receipt Date: 20090517
  Transmission Date: 20091009
  Serious: Yes (Hospitalization)
  Sender: FDA-Public Use
  Company Number: PHEH2009US04950

PATIENT
  Sex: Male

DRUGS (6)
  1. CLOZAPINE [Suspect]
     Indication: SCHIZOAFFECTIVE DISORDER
     Dosage: 50 MG, BID
     Route: 048
     Dates: start: 20090503, end: 20090516
  2. KLONOPIN [Concomitant]
  3. LORAZEPAM [Concomitant]
  4. LAMICTAL [Concomitant]
     Dosage: 200 MG, QD
  5. LIPITOR [Concomitant]
  6. ZYPREXA [Concomitant]
     Dosage: 15 MG, BID

REACTIONS (3)
  - ELECTROCARDIOGRAM QT PROLONGED [None]
  - PYREXIA [None]
  - TACHYCARDIA [None]
